FAERS Safety Report 16896776 (Version 1)
Quarter: 2019Q4

REPORT INFORMATION
  Report Type: Spontaneous
  Country: CN (occurrence: CN)
  Receive Date: 20191008
  Receipt Date: 20191008
  Transmission Date: 20200122
  Serious: Yes (Disabling, Other)
  Sender: FDA-Public Use
  Company Number: CN-BAXTER-2019BAX019616

PATIENT
  Age: 29 Year
  Sex: Male
  Weight: 74 kg

DRUGS (6)
  1. 0.9% SODIUM CHLORIDE INJECTION [Suspect]
     Active Substance: SODIUM CHLORIDE
     Dosage: CISPLATIN 40 MG + 0.9% SODIUM CHLORIDE
     Route: 041
     Dates: start: 20190913, end: 20190916
  2. 5% GLUCOSE  INJECTION [Suspect]
     Active Substance: DEXTROSE
     Indication: MEDICATION DILUTION
     Dosage: PACLITAXEL 280 MG + 5% GLUCOSE
     Route: 041
     Dates: start: 20190912, end: 20190912
  3. 0.9% SODIUM CHLORIDE INJECTION [Suspect]
     Active Substance: SODIUM CHLORIDE
     Indication: MEDICATION DILUTION
     Dosage: IFOSFAMIDE 2.4 G + 0.9% SODIUM CHLORIDE
     Route: 041
     Dates: start: 20190913, end: 20190916
  4. NUOXIN [Suspect]
     Active Substance: CISPLATIN
     Indication: MALIGNANT MEDIASTINAL NEOPLASM
     Dosage: CISPLATIN + 0.9% SODIUM CHLORIDE 250 ML
     Route: 041
     Dates: start: 20190913, end: 20190916
  5. HOLOXAN [Suspect]
     Active Substance: IFOSFAMIDE
     Indication: MALIGNANT MEDIASTINAL NEOPLASM
     Dosage: IFOSFAMIDE + 0.9 % SODIUM CHLORIDE (500 ML)
     Route: 041
     Dates: start: 20190913, end: 20190916
  6. PACLITAXEL LIPOSOME [Suspect]
     Active Substance: PACLITAXEL
     Indication: MALIGNANT MEDIASTINAL NEOPLASM
     Dosage: PACLITAXEL + 5% GLUCOSE INJECTION 500 ML
     Route: 041
     Dates: start: 20190912, end: 20190912

REACTIONS (1)
  - Blood count abnormal [Recovering/Resolving]

NARRATIVE: CASE EVENT DATE: 20190919
